FAERS Safety Report 13096852 (Version 1)
Quarter: 2017Q1

REPORT INFORMATION
  Report Type: Spontaneous
  Country: US (occurrence: US)
  Receive Date: 20170106
  Receipt Date: 20170106
  Transmission Date: 20170428
  Serious: Yes (Other)
  Sender: FDA-Public Use
  Company Number: None

PATIENT
  Age: 5 Year
  Sex: Male
  Weight: 15.75 kg

DRUGS (15)
  1. CLONIDINE. [Concomitant]
     Active Substance: CLONIDINE
  2. DIAZEPAM. [Concomitant]
     Active Substance: DIAZEPAM
  3. MOMETASONE [Concomitant]
     Active Substance: MOMETASONE
  4. NEXIUM [Concomitant]
     Active Substance: ESOMEPRAZOLE MAGNESIUM
  5. ALBUTEROL. [Concomitant]
     Active Substance: ALBUTEROL
  6. AZELASTINE [Concomitant]
     Active Substance: AZELASTINE
  7. ONFI [Suspect]
     Active Substance: CLOBAZAM
     Indication: SEIZURE
     Dosage: ?          QUANTITY:2 MLS;?
     Route: 048
     Dates: start: 20161108, end: 20161128
  8. ALBUTEROL HFA [Concomitant]
     Active Substance: ALBUTEROL SULFATE
  9. EPINEPHRINE. [Concomitant]
     Active Substance: EPINEPHRINE
  10. FLUTICASONE. [Concomitant]
     Active Substance: FLUTICASONE
  11. OXCARBAZEPINE. [Concomitant]
     Active Substance: OXCARBAZEPINE
  12. MELATONIN [Concomitant]
     Active Substance: MELATONIN
  13. TRIAMCINOLONE ACETONIDE. [Concomitant]
     Active Substance: TRIAMCINOLONE ACETONIDE
  14. LISDEXMFETAMINE DIMESYLATE [Concomitant]
  15. OLOPATADINE [Concomitant]
     Active Substance: OLOPATADINE

REACTIONS (3)
  - Nightmare [None]
  - Hallucination [None]
  - Abnormal dreams [None]

NARRATIVE: CASE EVENT DATE: 20161122
